FAERS Safety Report 21765773 (Version 1)
Quarter: 2022Q4

REPORT INFORMATION
  Report Type: Spontaneous
  Country: CA (occurrence: CA)
  Receive Date: 20221222
  Receipt Date: 20221222
  Transmission Date: 20230113
  Serious: Yes (Other)
  Sender: FDA-Public Use
  Company Number: CA-BAYER-2022P031424

PATIENT
  Age: 39 Year
  Sex: Female

DRUGS (5)
  1. YASMIN [Suspect]
     Active Substance: DROSPIRENONE\ETHINYL ESTRADIOL
     Indication: Premenstrual dysphoric disorder
     Dosage: UNK
     Route: 048
     Dates: start: 20071004, end: 20080922
  2. YASMIN [Suspect]
     Active Substance: DROSPIRENONE\ETHINYL ESTRADIOL
     Indication: Premenstrual dysphoric disorder
     Dosage: UNK
     Route: 048
     Dates: start: 200810, end: 20100327
  3. MOMETASONE FUROATE [Concomitant]
     Active Substance: MOMETASONE FUROATE
  4. NAPROSYN [Concomitant]
     Active Substance: NAPROXEN
  5. MARVELON [Concomitant]
     Active Substance: DESOGESTREL\ETHINYL ESTRADIOL

REACTIONS (6)
  - Pericarditis [None]
  - Tachycardia [Unknown]
  - Palpitations [Unknown]
  - Chest pain [Unknown]
  - Dyspnoea [Unknown]
  - Chest discomfort [Unknown]
